FAERS Safety Report 5154224-9 (Version None)
Quarter: 2006Q4

REPORT INFORMATION
  Report Type: 
  Country: None (occurrence: None)
  Receive Date: 20061114
  Receipt Date: 20061102
  Transmission Date: 20070319
  Serious: No
  Sender: FDA-Public Use
  Company Number: 2006AL003381

PATIENT
  Age: 38 Year
  Sex: Male

DRUGS (5)
  1. FLUOXETINE [Suspect]
     Indication: ABNORMAL BEHAVIOUR
     Dosage: 40 MG;QD;PO
     Route: 048
     Dates: start: 20061005, end: 20061006
  2. DIAZEPAM [Concomitant]
  3. VALPROIC ACID [Concomitant]
  4. OLANZAPINE [Concomitant]
  5. TEMAZEPAM [Concomitant]

REACTIONS (1)
  - SEROTONIN SYNDROME [None]
